FAERS Safety Report 25651366 (Version 5)
Quarter: 2025Q3

REPORT INFORMATION
  Report Type: Report from Study
  Country: US (occurrence: US)
  Receive Date: 20250806
  Receipt Date: 20250929
  Transmission Date: 20251021
  Serious: Yes (Other)
  Sender: MALLINCKRODT
  Company Number: US-MALLINCKRODT-MNK202504410

PATIENT
  Sex: Female

DRUGS (2)
  1. CORTICOTROPIN [Suspect]
     Active Substance: CORTICOTROPIN
     Indication: Pulmonary sarcoidosis
  2. ERGOCALCIFEROL [Concomitant]
     Active Substance: ERGOCALCIFEROL

REACTIONS (9)
  - Hypertension [Unknown]
  - Crying [Unknown]
  - Excessive skin [Unknown]
  - Thyroid disorder [Unknown]
  - Stress [Unknown]
  - Sensitive skin [Unknown]
  - Fatigue [Unknown]
  - Depressed mood [Unknown]
  - Product dose omission in error [Unknown]
